FAERS Safety Report 23753066 (Version 1)
Quarter: 2024Q2

REPORT INFORMATION
  Report Type: Spontaneous
  Country: CA (occurrence: None)
  Receive Date: 20240417
  Receipt Date: 20240417
  Transmission Date: 20240715
  Serious: Yes (Death, Hospitalization, Other)
  Sender: FDA-Public Use
  Company Number: 2021A360897

PATIENT
  Age: 70 Year
  Sex: Male
  Weight: 144 kg

DRUGS (22)
  1. BUDESONIDE\FORMOTEROL FUMARATE [Suspect]
     Active Substance: BUDESONIDE\FORMOTEROL FUMARATE
     Indication: Product used for unknown indication
     Dosage: 2 DF UNKNOWN UNKNOWN
  2. DILAUDID [Suspect]
     Active Substance: HYDROMORPHONE HYDROCHLORIDE
     Indication: Product used for unknown indication
     Route: 042
  3. FLOMAX [Suspect]
     Active Substance: TAMSULOSIN HYDROCHLORIDE
     Indication: Product used for unknown indication
     Dosage: 0.4MG UNKNOWN
     Route: 065
  4. FLONASE [Suspect]
     Active Substance: FLUTICASONE PROPIONATE
     Indication: Product used for unknown indication
     Dosage: UNK,1 SPRAY
     Route: 065
  5. GABAPENTIN [Suspect]
     Active Substance: GABAPENTIN
     Indication: Product used for unknown indication
     Route: 048
  6. HALDOL [Suspect]
     Active Substance: HALOPERIDOL
     Indication: Product used for unknown indication
     Route: 012
  7. MEPOLIZUMAB [Suspect]
     Active Substance: MEPOLIZUMAB
     Indication: Asthma
     Route: 042
  8. PANTOPRAZOLE SODIUM ANHYDROUS [Suspect]
     Active Substance: PANTOPRAZOLE SODIUM ANHYDROUS
     Indication: Product used for unknown indication
     Dosage: 40.0MG UNKNOWN
     Route: 065
  9. ROBINUL [Suspect]
     Active Substance: GLYCOPYRROLATE
     Indication: Product used for unknown indication
     Dosage: 0.4MG UNKNOWN
     Route: 065
  10. SENOKOT [Suspect]
     Active Substance: SENNOSIDES
     Indication: Product used for unknown indication
     Dosage: 17.2MG UNKNOWN
     Route: 048
  11. SODIUM CHLORIDE [Suspect]
     Active Substance: SODIUM CHLORIDE
     Indication: Product used for unknown indication
     Route: 065
  12. TIOTROPIUM BROMIDE [Suspect]
     Active Substance: TIOTROPIUM BROMIDE
     Indication: Product used for unknown indication
     Dosage: 2.0DF UNKNOWN
     Route: 065
  13. TYLENOL [Suspect]
     Active Substance: ACETAMINOPHEN
     Indication: Product used for unknown indication
     Dosage: 650.0MG UNKNOWN
     Route: 065
  14. VERSED [Suspect]
     Active Substance: MIDAZOLAM HYDROCHLORIDE
     Indication: Product used for unknown indication
     Dosage: 1.0MG UNKNOWN
     Route: 030
  15. BISOPROLOL [Concomitant]
     Active Substance: BISOPROLOL\BISOPROLOL FUMARATE
     Indication: Product used for unknown indication
  16. LASIX [Concomitant]
     Active Substance: FUROSEMIDE
     Indication: Product used for unknown indication
  17. LIPITOR [Concomitant]
     Active Substance: ATORVASTATIN CALCIUM
     Indication: Product used for unknown indication
  18. OMEPRAZOLE [Concomitant]
     Active Substance: OMEPRAZOLE
     Indication: Product used for unknown indication
  19. PERINDOPRIL [Concomitant]
     Active Substance: PERINDOPRIL
     Indication: Product used for unknown indication
  20. PREDNISONE [Concomitant]
     Active Substance: PREDNISONE
     Indication: Product used for unknown indication
  21. SPIRIVA [Concomitant]
     Active Substance: TIOTROPIUM BROMIDE MONOHYDRATE
     Indication: Product used for unknown indication
  22. ULORIC [Concomitant]
     Active Substance: FEBUXOSTAT
     Indication: Product used for unknown indication

REACTIONS (35)
  - Anxiety [Fatal]
  - COVID-19 [Fatal]
  - COVID-19 pneumonia [Fatal]
  - Confusional state [Fatal]
  - Contusion [Fatal]
  - Deep vein thrombosis [Fatal]
  - Dyspnoea [Fatal]
  - Dyspnoea exertional [Fatal]
  - Dyspnoea paroxysmal nocturnal [Fatal]
  - General physical health deterioration [Fatal]
  - Hallucination [Fatal]
  - Hypokalaemia [Fatal]
  - Hyponatraemia [Fatal]
  - Hypoxia [Fatal]
  - Lymphadenopathy [Fatal]
  - Malaise [Fatal]
  - Myoclonus [Fatal]
  - Neuralgia [Fatal]
  - Neurotoxicity [Fatal]
  - Odynophagia [Fatal]
  - Oedema peripheral [Fatal]
  - Orthopnoea [Fatal]
  - Pneumonia [Fatal]
  - Productive cough [Fatal]
  - Pulmonary embolism [Fatal]
  - Pyrexia [Fatal]
  - Respiratory failure [Fatal]
  - Rhinorrhoea [Fatal]
  - Somnolence [Fatal]
  - Sputum discoloured [Fatal]
  - Tremor [Fatal]
  - Troponin increased [Fatal]
  - Umbilical hernia [Fatal]
  - Urinary incontinence [Fatal]
  - Wheezing [Fatal]

NARRATIVE: CASE EVENT DATE: 20200101
